FAERS Safety Report 14742939 (Version 2)
Quarter: 2018Q2

REPORT INFORMATION
  Report Type: Report from Study
  Country: US (occurrence: US)
  Receive Date: 20180410
  Receipt Date: 20180425
  Transmission Date: 20180711
  Serious: Yes (Hospitalization)
  Sender: FDA-Public Use
  Company Number: US-ACTELION-A-US2017-162855

PATIENT
  Age: 72 Year
  Sex: Male

DRUGS (7)
  1. ADCIRCA [Concomitant]
     Active Substance: TADALAFIL
     Dosage: 40 MG, QD
     Dates: start: 201703
  2. UPTRAVI [Suspect]
     Active Substance: SELEXIPAG
     Indication: PULMONARY ARTERIAL HYPERTENSION
     Dosage: 1400 MCG, BID
     Route: 048
  3. METOPROLOL TARTRATE. [Concomitant]
     Active Substance: METOPROLOL TARTRATE
     Dosage: 25 MG, BID
  4. UPTRAVI [Suspect]
     Active Substance: SELEXIPAG
     Dosage: 1200 MCG, BID
     Route: 048
  5. TORSEMIDE. [Concomitant]
     Active Substance: TORSEMIDE
     Dosage: 40 MG, QD
  6. UPTRAVI [Suspect]
     Active Substance: SELEXIPAG
     Dosage: 400 MCG, BID
     Route: 048
     Dates: start: 20171030
  7. POTASSIUM CHLORIDE. [Concomitant]
     Active Substance: POTASSIUM CHLORIDE
     Dosage: 10 MEQ, QD

REACTIONS (11)
  - Atrial flutter [Recovered/Resolved]
  - Myalgia [Unknown]
  - Pain in jaw [Unknown]
  - Toothache [Unknown]
  - Vision blurred [Unknown]
  - Headache [Unknown]
  - Cardiac failure [Recovered/Resolved]
  - Disturbance in attention [Unknown]
  - Cardioversion [Unknown]
  - Glossodynia [Unknown]
  - Migraine [Unknown]

NARRATIVE: CASE EVENT DATE: 20180307
